FAERS Safety Report 10467675 (Version 1)
Quarter: 2014Q3

REPORT INFORMATION
  Report Type: Spontaneous
  Country: RU (occurrence: RU)
  Receive Date: 20140922
  Receipt Date: 20140922
  Transmission Date: 20150326
  Serious: Yes (Other)
  Sender: FDA-Public Use
  Company Number: RU-VIIV HEALTHCARE LIMITED-B1025490A

PATIENT
  Age: 38 Year
  Sex: Male

DRUGS (4)
  1. RITONAVIR [Suspect]
     Active Substance: RITONAVIR
     Indication: HIV INFECTION
     Route: 065
     Dates: start: 20140721
  2. REYATAZ [Suspect]
     Active Substance: ATAZANAVIR SULFATE
     Indication: HIV INFECTION
     Route: 065
     Dates: start: 20140721
  3. URBASON [Concomitant]
     Active Substance: METHYLPREDNISOLONE
     Indication: BILIARY DYSKINESIA
     Dosage: 250MG THREE TIMES PER DAY
     Route: 065
     Dates: start: 2014
  4. KIVEXA [Suspect]
     Active Substance: ABACAVIR SULFATE\LAMIVUDINE
     Indication: HIV INFECTION
     Route: 065
     Dates: start: 20140721

REACTIONS (7)
  - Ocular icterus [Not Recovered/Not Resolved]
  - Yellow skin [Not Recovered/Not Resolved]
  - Polydipsia [Unknown]
  - Lipodystrophy acquired [Unknown]
  - Bilirubin conjugated increased [Not Recovered/Not Resolved]
  - Laziness [Unknown]
  - Deformity [Unknown]

NARRATIVE: CASE EVENT DATE: 201407
